FAERS Safety Report 9230533 (Version 1)
Quarter: 2013Q2

REPORT INFORMATION
  Report Type: Spontaneous
  Country: CA (occurrence: CA)
  Receive Date: 20130415
  Receipt Date: 20130415
  Transmission Date: 20140414
  Serious: Yes (Disabling, Other)
  Sender: FDA-Public Use
  Company Number: CA-PFIZER INC-2013066469

PATIENT
  Age: 56 Year
  Sex: Female
  Weight: 50.34 kg

DRUGS (5)
  1. PRISTIQ [Suspect]
     Indication: ADJUSTMENT DISORDER
     Dosage: UNK
     Route: 048
     Dates: start: 20120515, end: 201206
  2. PRISTIQ [Suspect]
     Dosage: 100 MG, 1X/DAY
     Route: 048
     Dates: start: 201206
  3. PRISTIQ [Suspect]
     Dosage: 50 MG, UNK
     Route: 048
  4. PRISTIQ [Suspect]
     Dosage: 100 MG, UNK
  5. CELEXA [Concomitant]
     Indication: ADJUSTMENT DISORDER
     Dosage: 20 UNK, UNK
     Route: 048
     Dates: start: 201205, end: 20120515

REACTIONS (10)
  - Off label use [Unknown]
  - Blood pressure decreased [Not Recovered/Not Resolved]
  - Tachycardia [Not Recovered/Not Resolved]
  - Dyspnoea exertional [Not Recovered/Not Resolved]
  - Chest pain [Not Recovered/Not Resolved]
  - Cough [Not Recovered/Not Resolved]
  - Fall [Unknown]
  - Asthenia [Not Recovered/Not Resolved]
  - Depressed mood [Not Recovered/Not Resolved]
  - Haemoglobin decreased [Unknown]
